FAERS Safety Report 8263401-X (Version None)
Quarter: 2012Q2

REPORT INFORMATION
  Report Type: 
  Country: None (occurrence: None)
  Receive Date: 20120405
  Receipt Date: 20120328
  Transmission Date: 20120825
  Serious: Yes (Hospitalization)
  Sender: FDA-Public Use
  Company Number: IE-US-EMD SERONO, INC.-7091855

PATIENT
  Sex: Male

DRUGS (9)
  1. CALICHEW + VITAMIN D3 [Concomitant]
     Indication: BONE DENSITY DECREASED
  2. FOSANMAX (FOSAMAX) [Concomitant]
     Indication: BONE DENSITY DECREASED
  3. BACLOFEN [Concomitant]
     Dates: start: 20110201
  4. BACLOFEN [Concomitant]
     Indication: MUSCLE SPASMS
     Dates: end: 20110201
  5. EVENING PRIMROSE OIL [Concomitant]
     Indication: PRODUCT USED FOR UNKNOWN INDICATION
     Dates: start: 20120101
  6. REBIF [Suspect]
     Indication: SECONDARY PROGRESSIVE MULTIPLE SCLEROSIS
     Route: 058
     Dates: start: 20110906
  7. FOLIC ACID [Concomitant]
     Indication: PRODUCT USED FOR UNKNOWN INDICATION
  8. ZORCLONE [Concomitant]
     Indication: SLEEP DISORDER
  9. REBIF [Suspect]
     Indication: PRIMARY PROGRESSIVE MULTIPLE SCLEROSIS
     Route: 058
     Dates: start: 20100906

REACTIONS (5)
  - OFF LABEL USE [None]
  - MUSCLE SPASMS [None]
  - CHILLS [None]
  - MUSCULAR WEAKNESS [None]
  - MOBILITY DECREASED [None]
